FAERS Safety Report 13351230 (Version 1)
Quarter: 2017Q1

REPORT INFORMATION
  Report Type: Report from Study
  Country: FR (occurrence: FR)
  Receive Date: 20170320
  Receipt Date: 20170320
  Transmission Date: 20170429
  Serious: Yes (Other)
  Sender: FDA-Public Use
  Company Number: FR-ROCHE-1657914

PATIENT
  Age: 55 Year
  Sex: Female

DRUGS (2)
  1. PREDNISONE. [Suspect]
     Active Substance: PREDNISONE
     Indication: WARM TYPE HAEMOLYTIC ANAEMIA
     Dosage: THEN TAPERED EVERY 10 DAYS ACCORDING TO A STANDARDIZED PROCEDURE AND STOPPED WITHIN 3 MONTHS IN CASE
     Route: 065
  2. RITUXIMAB [Suspect]
     Active Substance: RITUXIMAB
     Indication: WARM TYPE HAEMOLYTIC ANAEMIA
     Dosage: 2 WEEKS APART (ON DAYS 1 AND 15 AFTER RANDOMIZATION).
     Route: 042

REACTIONS (1)
  - Pneumocystis jirovecii pneumonia [Recovered/Resolved]
